FAERS Safety Report 11409229 (Version 1)
Quarter: 2015Q3

REPORT INFORMATION
  Report Type: Spontaneous
  Country: US (occurrence: None)
  Receive Date: 20150820
  Receipt Date: 20150820
  Transmission Date: 20151125
  Serious: Yes (Other)
  Sender: FDA-Public Use
  Company Number: None

PATIENT
  Age: 83 Year
  Sex: Female
  Weight: 69.4 kg

DRUGS (3)
  1. BABY ASPIRIIN [Concomitant]
  2. NALDOLOL 40MG MYLAN [Suspect]
     Active Substance: NADOLOL
     Indication: HEART RATE INCREASED
     Dosage: / PILL/DAY (I.E.20MG PER DAY, ONCE DAILY, TAKEN BY MOUTH
     Route: 048
     Dates: start: 20150801, end: 20150819
  3. NALDOLOL 40MG MYLAN [Suspect]
     Active Substance: NADOLOL
     Indication: HEART RATE IRREGULAR
     Dosage: / PILL/DAY (I.E.20MG PER DAY, ONCE DAILY, TAKEN BY MOUTH
     Route: 048
     Dates: start: 20150801, end: 20150819

REACTIONS (3)
  - Condition aggravated [None]
  - Heart rate irregular [None]
  - Product substitution issue [None]
